FAERS Safety Report 16298200 (Version 1)
Quarter: 2019Q2

REPORT INFORMATION
  Report Type: Spontaneous
  Country: US (occurrence: US)
  Receive Date: 20190510
  Receipt Date: 20190510
  Transmission Date: 20190711
  Serious: Yes (Other)
  Sender: FDA-Public Use
  Company Number: US-BRISTOL-MYERS SQUIBB COMPANY-BMS-2019-043816

PATIENT
  Sex: Female

DRUGS (1)
  1. OPDIVO [Suspect]
     Active Substance: NIVOLUMAB
     Indication: MALIGNANT MELANOMA
     Dosage: UNAVAILABLE
     Route: 042
     Dates: start: 201802

REACTIONS (6)
  - Malignant melanoma [Unknown]
  - Fatigue [Unknown]
  - Hypersensitivity [Unknown]
  - Rash [Unknown]
  - Nervous system disorder [Unknown]
  - Skin cancer [Unknown]
